FAERS Safety Report 19596834 (Version 1)
Quarter: 2021Q3

REPORT INFORMATION
  Report Type: Spontaneous
  Country: US (occurrence: US)
  Receive Date: 20210722
  Receipt Date: 20210722
  Transmission Date: 20211014
  Serious: No
  Sender: FDA-Public Use
  Company Number: US-VERTEX PHARMACEUTICALS-2021-010717

PATIENT
  Age: 14 Year
  Sex: Male

DRUGS (1)
  1. TRIKAFTA [Suspect]
     Active Substance: ELEXACAFTOR\IVACAFTOR\TEZACAFTOR
     Indication: CYSTIC FIBROSIS
     Dosage: (100MG IVACAFTOR/50MG TEZACAFTOR/75MG ELEXACAFTOR; 150MG IVACAFTOR)UNK FREQ
     Route: 048
     Dates: start: 2020

REACTIONS (2)
  - Musculoskeletal disorder [Unknown]
  - Arthralgia [Unknown]
